FAERS Safety Report 6143568-X (Version None)
Quarter: 2009Q2

REPORT INFORMATION
  Report Type: 
  Country: None (occurrence: None)
  Receive Date: 20090403
  Receipt Date: 20090325
  Transmission Date: 20091009
  Serious: Yes (Other)
  Sender: FDA-Public Use
  Company Number: US-PFIZER INC-2009190072

PATIENT
  Sex: Male
  Weight: 84.807 kg

DRUGS (4)
  1. CELEBREX [Suspect]
     Indication: ARTHRITIS
     Dates: start: 20090315
  2. PAXIL [Interacting]
     Indication: AGITATION
     Dates: start: 20090301, end: 20090301
  3. ATENOLOL [Concomitant]
  4. ACETYLSALICYLIC ACID [Concomitant]

REACTIONS (3)
  - DRUG INTERACTION [None]
  - MENTAL DISORDER [None]
  - SEROTONIN SYNDROME [None]
